FAERS Safety Report 9858395 (Version 1)
Quarter: 2014Q1

REPORT INFORMATION
  Report Type: Spontaneous
  Country: US (occurrence: None)
  Receive Date: 20140130
  Receipt Date: 20140130
  Transmission Date: 20141002
  Serious: Yes (Other)
  Sender: FDA-Public Use
  Company Number: None

PATIENT
  Age: 65 Year
  Sex: Male

DRUGS (1)
  1. MOVIPREP [Suspect]
     Indication: COLONOSCOPY
     Dates: start: 20140129

REACTIONS (4)
  - Hypersensitivity [None]
  - Urticaria [None]
  - Local swelling [None]
  - Local swelling [None]
